FAERS Safety Report 9437651 (Version 2)
Quarter: 2013Q3

REPORT INFORMATION
  Report Type: Spontaneous
  Country: ZA (occurrence: ZA)
  Receive Date: 20130802
  Receipt Date: 20130821
  Transmission Date: 20140515
  Serious: Yes (Hospitalization, Other)
  Sender: FDA-Public Use
  Company Number: ZA-ABBOTT-13P-143-1126605-00

PATIENT
  Sex: Female

DRUGS (2)
  1. HUMIRA [Suspect]
     Indication: RHEUMATOID ARTHRITIS
     Route: 058
     Dates: start: 201207
  2. ANTIBIOTICS [Suspect]
     Route: 042

REACTIONS (3)
  - Laceration [Recovering/Resolving]
  - Wound infection [Recovering/Resolving]
  - Localised infection [Unknown]
